FAERS Safety Report 9520703 (Version 1)
Quarter: 2013Q3

REPORT INFORMATION
  Report Type: Spontaneous
  Country: US (occurrence: None)
  Receive Date: 20130911
  Receipt Date: 20130911
  Transmission Date: 20140515
  Serious: Yes (Hospitalization)
  Sender: FDA-Public Use
  Company Number: None

PATIENT
  Age: 56 Year
  Sex: Male
  Weight: 71.6 kg

DRUGS (12)
  1. CETUXIMAB [Suspect]
     Indication: TONSIL CANCER
     Dosage: 459 MG  ONCE  IV
     Route: 042
     Dates: start: 20130816, end: 20130816
  2. ALBUTEROL [Concomitant]
  3. DEXAMETHASONE [Concomitant]
  4. FLUCONAZOLE [Concomitant]
  5. GUAIFENESIN [Concomitant]
  6. HC 1%/NEOMYCIN 3.5MG/POLYMYXIN OTIC SOLN [Concomitant]
  7. IBUPROFEN 400MG TAB [Concomitant]
  8. LIDOCAINE HCL 2% VISCOUS [Concomitant]
  9. MORPHINE SULFATE [Concomitant]
  10. MOXIFLOXACIN [Concomitant]
  11. ONDANSETRON [Concomitant]
  12. OXYCODONE [Concomitant]

REACTIONS (2)
  - Drug hypersensitivity [None]
  - Hypertension [None]
